FAERS Safety Report 22157025 (Version 1)
Quarter: 2023Q1

REPORT INFORMATION
  Report Type: Spontaneous
  Country: DK (occurrence: DK)
  Receive Date: 20230330
  Receipt Date: 20230330
  Transmission Date: 20230417
  Serious: Yes (Life-Threatening, Hospitalization, Disabling)
  Sender: FDA-Public Use
  Company Number: None

PATIENT
  Age: 61 Year
  Sex: Female
  Weight: 76 kg

DRUGS (8)
  1. OLUMIANT [Suspect]
     Active Substance: BARICITINIB
     Indication: Rheumatoid arthritis
     Dosage: 2 MG, DAILY
     Route: 048
     Dates: start: 20201204
  2. CLOPIDOGREL [Concomitant]
     Active Substance: CLOPIDOGREL BISULFATE
     Indication: Thrombosis prophylaxis
     Dosage: UNK UNK, UNKNOWN
     Route: 048
     Dates: start: 20190207
  3. FELODIPINE [Concomitant]
     Active Substance: FELODIPINE
     Indication: Hypertension
     Dosage: UNK UNK, UNKNOWN
     Route: 048
     Dates: start: 20191015
  4. OMEPRAZOLE MAGNESIUM [Concomitant]
     Active Substance: OMEPRAZOLE MAGNESIUM
     Indication: Gastrooesophageal reflux disease
     Dates: start: 20100414
  5. BENDROFLUMETHIAZIDE\POTASSIUM CHLORIDE [Concomitant]
     Active Substance: BENDROFLUMETHIAZIDE\POTASSIUM CHLORIDE
     Indication: Diuretic therapy
     Dosage: UNK, UNKNOWN
     Route: 048
     Dates: start: 20210510
  6. SIMVASTATIN [Concomitant]
     Active Substance: SIMVASTATIN
     Indication: Hypercholesterolaemia
     Route: 048
     Dates: start: 20120308
  7. BETAHISTINE [Concomitant]
     Active Substance: BETAHISTINE
     Indication: Dizziness
     Dosage: UNK, UNKNOWN
     Route: 048
     Dates: start: 20220823
  8. DEXOFAN [DEXTROMETHORPHAN HYDROBROMIDE] [Concomitant]
     Indication: Antitussive therapy
     Dosage: UNK UNK, UNKNOWN
     Route: 048
     Dates: start: 20211026

REACTIONS (4)
  - Hemiparaesthesia [Unknown]
  - Cerebral thrombosis [Recovered/Resolved with Sequelae]
  - Cerebral infarction [Unknown]
  - Hemiparesis [Unknown]

NARRATIVE: CASE EVENT DATE: 20221104
